FAERS Safety Report 5494917-7 (Version None)
Quarter: 2007Q4

REPORT INFORMATION
  Report Type: 
  Country: None (occurrence: None)
  Receive Date: 20071024
  Receipt Date: 20071015
  Transmission Date: 20080405
  Serious: Yes (Other)
  Sender: FDA-Public Use
  Company Number: US-JNJFOC-20070703249

PATIENT
  Sex: Female
  Weight: 66.23 kg

DRUGS (8)
  1. TOPAMAX [Suspect]
     Route: 048
  2. TOPAMAX [Suspect]
     Indication: DRUG THERAPY
     Route: 048
  3. TOPAMAX [Suspect]
     Indication: MIGRAINE PROPHYLAXIS
     Route: 048
  4. HYDROCHLOROTHIAZIDE [Suspect]
     Indication: DRUG USE FOR UNKNOWN INDICATION
  5. ZOLOFT [Concomitant]
  6. CONCERTA [Concomitant]
  7. PROVIGIL [Concomitant]
  8. LISINOPRIL [Concomitant]

REACTIONS (4)
  - BLOOD SODIUM DECREASED [None]
  - DISTURBANCE IN ATTENTION [None]
  - HEART RATE IRREGULAR [None]
  - MUSCULOSKELETAL DISCOMFORT [None]
